FAERS Safety Report 14680921 (Version 1)
Quarter: 2018Q1

REPORT INFORMATION
  Report Type: Report from Study
  Country: AU (occurrence: AU)
  Receive Date: 20180326
  Receipt Date: 20180326
  Transmission Date: 20180509
  Serious: Yes (Other)
  Sender: FDA-Public Use
  Company Number: PHHY2018AU049001

PATIENT
  Age: 7 Month
  Sex: Female

DRUGS (1)
  1. COSENTYX [Suspect]
     Active Substance: SECUKINUMAB
     Indication: FOETAL EXPOSURE DURING PREGNANCY
     Dosage: MATERNAL DOSE :300 MG, QMO
     Route: 064

REACTIONS (5)
  - Nasopharyngitis [Unknown]
  - Oropharyngeal pain [Unknown]
  - Ear infection [Unknown]
  - Foetal exposure during pregnancy [Unknown]
  - Infection susceptibility increased [Unknown]
